FAERS Safety Report 8399963 (Version 2)
Quarter: 2013Q2

REPORT INFORMATION
  Report Type: Spontaneous
  Country: GB (occurrence: GB)
  Receive Date: 20120210
  Receipt Date: 20130403
  Transmission Date: 20140414
  Serious: Yes (Death, Hospitalization, Other)
  Sender: FDA-Public Use
  Company Number: GB-ALEXION PHARMACEUTICALS INC.-A201200211

PATIENT
  Sex: Female

DRUGS (3)
  1. SOLIRIS 300MG [Suspect]
     Indication: PAROXYSMAL NOCTURNAL HAEMOGLOBINURIA
     Dosage: 900 MG, Q2W
     Route: 042
  2. PROTHROMBINEX [Suspect]
     Indication: GASTROINTESTINAL HAEMORRHAGE
  3. WARFARIN [Concomitant]

REACTIONS (5)
  - Gastrointestinal haemorrhage [Fatal]
  - Arterial thrombosis [Fatal]
  - Cerebrovascular accident [Fatal]
  - Hemiparesis [Unknown]
  - Dysphagia [Unknown]
